FAERS Safety Report 7645813-8 (Version None)
Quarter: 2011Q3

REPORT INFORMATION
  Report Type: 
  Country: None (occurrence: None)
  Receive Date: 20110729
  Receipt Date: 20110720
  Transmission Date: 20111222
  Serious: Yes (Other)
  Sender: FDA-Public Use
  Company Number: US-ASTRAZENECA-2009UW11455

PATIENT
  Age: 51 Year
  Sex: Female
  Weight: 99.8 kg

DRUGS (4)
  1. SEROQUEL [Suspect]
     Indication: DEPRESSION
     Route: 048
     Dates: start: 20040101
  2. WELLBUTRIN [Concomitant]
     Dates: start: 20040101
  3. SEROQUEL [Suspect]
     Route: 048
     Dates: start: 20040417
  4. WELLBUTRIN [Concomitant]
     Route: 048
     Dates: start: 20040417

REACTIONS (9)
  - HYPERLIPIDAEMIA [None]
  - TYPE 2 DIABETES MELLITUS [None]
  - DIVERTICULITIS [None]
  - BLOOD CHOLESTEROL INCREASED [None]
  - PULMONARY EMBOLISM [None]
  - ADVERSE DRUG REACTION [None]
  - DRUG DEPENDENCE [None]
  - CHEST PAIN [None]
  - OBESITY [None]
